FAERS Safety Report 9562099 (Version 1)
Quarter: 2013Q3

REPORT INFORMATION
  Report Type: Spontaneous
  Country: FR (occurrence: FR)
  Receive Date: 20130927
  Receipt Date: 20130927
  Transmission Date: 20140515
  Serious: Yes (Hospitalization)
  Sender: FDA-Public Use
  Company Number: FR-PFIZER INC-2013271827

PATIENT
  Age: 69 Year
  Sex: Female

DRUGS (11)
  1. TRIFLUCAN [Suspect]
     Indication: PLEURAL FISTULA
     Dosage: UNK
     Route: 042
     Dates: start: 20130820, end: 20130902
  2. VANCOMYCINE [Suspect]
     Indication: PLEURAL FISTULA
     Dosage: UNK
     Route: 042
     Dates: start: 20130718, end: 20130830
  3. MERONEM [Suspect]
     Indication: PLEURAL FISTULA
     Dosage: UNK
     Route: 042
     Dates: start: 20130718, end: 20130830
  4. CANCIDAS [Suspect]
     Indication: PLEURAL FISTULA
     Dosage: UNK
     Route: 042
     Dates: start: 201308, end: 20130820
  5. TENORMINE [Concomitant]
     Dosage: 1 DF, 1X/DAY
  6. ANAFRANIL [Concomitant]
     Dosage: 1 DF, 1X/DAY
  7. LEVOTHYROX [Concomitant]
     Dosage: 1 DF, 1X/DAY
  8. OLMETEC [Concomitant]
     Dosage: 5 MG, 1X/DAY
  9. ALDACTAZINE [Concomitant]
     Dosage: 1 DF, 1X/DAY (MORNING)
  10. IMOVANE [Concomitant]
     Dosage: 1 DF, 1X/DAY (AT BEDTIME)
  11. PYOSTACINE [Concomitant]
     Indication: PLEURAL FISTULA

REACTIONS (1)
  - Drug reaction with eosinophilia and systemic symptoms [Recovering/Resolving]
